FAERS Safety Report 4881606-2 (Version None)
Quarter: 2005Q4

REPORT INFORMATION
  Report Type: 
  Country: None (occurrence: None)
  Receive Date: 20051201
  Receipt Date: 20050928
  Transmission Date: 20060501
  Serious: No
  Sender: FDA-Public Use
  Company Number: 2005PV002614

PATIENT
  Sex: Male
  Weight: 105.2345 kg

DRUGS (3)
  1. BYETTA [Suspect]
     Dosage: 10 MCG; 5 MCG: BID; SC
     Route: 058
     Dates: end: 20050821
  2. BYETTA [Suspect]
     Dosage: 10 MCG; 5 MCG: BID; SC
     Route: 058
     Dates: start: 20050822
  3. ASPIRIN [Concomitant]

REACTIONS (2)
  - INJECTION SITE BRUISING [None]
  - INJECTION SITE HAEMORRHAGE [None]
